FAERS Safety Report 5705267-5 (Version None)
Quarter: 2008Q2

REPORT INFORMATION
  Report Type: 
  Country: None (occurrence: None)
  Receive Date: 20080410
  Receipt Date: 20080331
  Transmission Date: 20081010
  Serious: Yes (Hospitalization)
  Sender: FDA-Public Use
  Company Number: GXKR2008TW03166

PATIENT
  Age: 52 Year
  Sex: Female

DRUGS (4)
  1. ACETYLSALICYLIC ACID SRT [Suspect]
     Indication: PROPHYLAXIS
     Dosage: ORAL
     Route: 048
  2. PROTEASE(PROTEASE) [Suspect]
     Indication: PROPHYLAXIS
     Dosage: ORAL
     Route: 048
  3. ANTIHYPERTENSIVES (NO INGREDIENTS/SUBSTANCES) [Concomitant]
  4. ANTI-PARKINSON AGENTS (NO INGREDIENTS/SUBSTANCES) [Concomitant]

REACTIONS (6)
  - BLOOD PRESSURE INCREASED [None]
  - CEREBELLAR HAEMORRHAGE [None]
  - DRUG EFFECT INCREASED [None]
  - GAIT DISTURBANCE [None]
  - INCORRECT DOSE ADMINISTERED [None]
  - VERTIGO [None]
